FAERS Safety Report 15309873 (Version 1)
Quarter: 2018Q3

REPORT INFORMATION
  Report Type: Spontaneous
  Country: US (occurrence: US)
  Receive Date: 20180823
  Receipt Date: 20180823
  Transmission Date: 20181010
  Serious: Yes (Other)
  Sender: FDA-Public Use
  Company Number: US-ROCHE-2170545

PATIENT
  Sex: Female

DRUGS (1)
  1. OCREVUS [Suspect]
     Active Substance: OCRELIZUMAB
     Indication: PRODUCT USED FOR UNKNOWN INDICATION
     Dosage: ONGOING: UNKNOWN
     Route: 065
     Dates: start: 20180801

REACTIONS (7)
  - Memory impairment [Unknown]
  - Pain [Unknown]
  - Hypersomnia [Unknown]
  - Tremor [Unknown]
  - Amnesia [Unknown]
  - Malaise [Unknown]
  - Sensory disturbance [Unknown]
